FAERS Safety Report 9358023 (Version 12)
Quarter: 2015Q3

REPORT INFORMATION
  Report Type: Spontaneous
  Country: US (occurrence: US)
  Receive Date: 20130620
  Receipt Date: 20150805
  Transmission Date: 20151125
  Serious: Yes (Hospitalization, Other)
  Sender: FDA-Public Use
  Company Number: US-009507513-1306USA006663

PATIENT
  Sex: Female

DRUGS (6)
  1. FOSAMAX [Suspect]
     Active Substance: ALENDRONATE SODIUM
     Indication: OSTEOPENIA
     Dosage: 70 MG, QW
     Route: 048
  2. CENTRUM (MINERALS (UNSPECIFIED) (+) VITAMINS (UNSPECIFIED)) [Concomitant]
     Indication: PRODUCT USED FOR UNKNOWN INDICATION
     Dosage: UNK, QD
     Route: 065
     Dates: start: 1980
  3. LEVOXYL [Concomitant]
     Active Substance: LEVOTHYROXINE SODIUM
     Indication: HYPOTHYROIDISM
     Dosage: 77-88 MICROGRAM, QD
     Route: 065
     Dates: start: 1985
  4. ALENDRONATE SODIUM. [Suspect]
     Active Substance: ALENDRONATE SODIUM
     Indication: OSTEOPENIA
     Dosage: 70 MG, QW
     Route: 048
     Dates: start: 20080229
  5. CITRACAL + D [Concomitant]
     Active Substance: CALCIUM CITRATE\VITAMIN D
     Indication: PRODUCT USED FOR UNKNOWN INDICATION
     Dosage: UNK, BID
     Route: 065
     Dates: start: 1980
  6. ALENDRONATE SODIUM. [Suspect]
     Active Substance: ALENDRONATE SODIUM
     Indication: OSTEOPENIA
     Dosage: 70 MG, UNK
     Route: 048
     Dates: start: 20100618, end: 20110422

REACTIONS (33)
  - Bone graft [Unknown]
  - Open reduction of fracture [Unknown]
  - Fatigue [Unknown]
  - Fracture nonunion [Unknown]
  - Intramedullary rod insertion [Unknown]
  - Internal fixation of fracture [Unknown]
  - Femur fracture [Unknown]
  - Granuloma [Recovering/Resolving]
  - Anaemia [Unknown]
  - Stomatitis [Unknown]
  - Mass [Unknown]
  - Femur fracture [Recovered/Resolved]
  - Removal of internal fixation [Unknown]
  - Surgery [Unknown]
  - Osteoporosis [Unknown]
  - Cellulitis [Unknown]
  - Fall [Unknown]
  - Removal of internal fixation [Unknown]
  - Spinal laminectomy [Unknown]
  - Nausea [Unknown]
  - Femur fracture [Unknown]
  - Low turnover osteopathy [Unknown]
  - Osteotomy [Unknown]
  - Anaemia postoperative [Recovered/Resolved]
  - Humerus fracture [Unknown]
  - Cardiac murmur [Unknown]
  - Fracture malunion [Unknown]
  - Open reduction of fracture [Unknown]
  - Device breakage [Unknown]
  - Spinal fusion surgery [Unknown]
  - Femur fracture [Unknown]
  - Mastication disorder [Unknown]
  - Osteomyelitis [Unknown]

NARRATIVE: CASE EVENT DATE: 200110
